FAERS Safety Report 9862440 (Version 1)
Quarter: 2014Q1

REPORT INFORMATION
  Report Type: Spontaneous
  Country: US (occurrence: None)
  Receive Date: 20140130
  Receipt Date: 20140130
  Transmission Date: 20141002
  Serious: Yes (Death)
  Sender: FDA-Public Use
  Company Number: 2014AP000375

PATIENT
  Age: 42 Year
  Sex: Female

DRUGS (12)
  1. CITALOPRAM HYDROBROMIDE TABLETS [Suspect]
  2. MELOXICAM TABLETS [Suspect]
  3. FENTANYL [Suspect]
     Dosage: ;TDER
     Route: 062
  4. DOXEPIN [Suspect]
  5. MORPHINE [Suspect]
  6. HYDROMORPHONE [Suspect]
  7. ANDROGEN [Suspect]
  8. ACETAMINOPHEN W/OXYCODONE [Suspect]
  9. ALPRAZOLAM [Suspect]
  10. CLONAZEPAM TABLETS, USP [Suspect]
  11. TAPENTADOL [Suspect]
  12. LEVOTHYROXINE [Suspect]

REACTIONS (2)
  - Cardio-respiratory arrest [None]
  - Completed suicide [None]
